FAERS Safety Report 21873668 (Version 1)
Quarter: 2023Q1

REPORT INFORMATION
  Report Type: Spontaneous
  Country: US (occurrence: US)
  Receive Date: 20230117
  Receipt Date: 20230117
  Transmission Date: 20230418
  Serious: No
  Sender: FDA-Public Use
  Company Number: US-SA-SAC20230116000162

PATIENT
  Sex: Male

DRUGS (3)
  1. DUPIXENT [Suspect]
     Active Substance: DUPILUMAB
     Indication: Eczema asteatotic
     Dosage: UNK
     Route: 065
  2. DUPIXENT [Suspect]
     Active Substance: DUPILUMAB
     Indication: Dermatitis atopic
  3. CIBINQO [Concomitant]
     Active Substance: ABROCITINIB
     Indication: Dermatitis atopic
     Dosage: 100 MG, QD

REACTIONS (7)
  - Dermatitis atopic [Unknown]
  - Eczema [Unknown]
  - Rash erythematous [Unknown]
  - Inflammation [Unknown]
  - Dry skin [Unknown]
  - Skin exfoliation [Unknown]
  - Product use in unapproved indication [Unknown]
